FAERS Safety Report 8482919-8 (Version None)
Quarter: 2012Q3

REPORT INFORMATION
  Report Type: 
  Country: None (occurrence: None)
  Receive Date: 20120702
  Receipt Date: 20120621
  Transmission Date: 20120928
  Serious: Yes (Hospitalization, Other)
  Sender: FDA-Public Use
  Company Number: US-ELI_LILLY_AND_COMPANY-US201201006864

PATIENT
  Sex: Female

DRUGS (25)
  1. LYRICA [Concomitant]
     Dosage: 75 MG, BID
  2. FORTEO [Suspect]
     Dosage: 20 UG, QD
     Route: 058
  3. COREG [Concomitant]
     Dosage: 37.5 MG, QD
  4. NIASPAN [Concomitant]
     Dosage: 500 MG, QD
  5. AMBIEN [Concomitant]
     Dosage: 5 MG, QD
  6. CRESTOR [Concomitant]
     Dosage: 40 MG, QD
  7. HYZAAR [Concomitant]
  8. PROVENTIL                          /00139501/ [Concomitant]
     Dosage: UNK, PRN
  9. DICLOFENAC SODIUM [Concomitant]
  10. ACTOS [Concomitant]
     Dosage: 45 MG, QD
  11. FORTEO [Suspect]
     Dosage: 20 UG, QD
     Route: 058
  12. VICODIN [Concomitant]
  13. HUMALOG [Concomitant]
     Dosage: 3 U, BID
  14. FORTEO [Suspect]
     Indication: OSTEOPOROSIS
     Dosage: 20 UG, QD
     Route: 058
     Dates: start: 20111122
  15. FORTEO [Suspect]
     Dosage: 20 UG, QD
     Route: 058
  16. FORTEO [Suspect]
     Dosage: 20 UG, QD
     Route: 058
  17. PLAVIX [Concomitant]
     Dosage: 75 MG, QD
  18. IBUPROFEN [Concomitant]
  19. ASPIRIN [Concomitant]
  20. ASPIRIN [Concomitant]
  21. LISINOPRIL [Concomitant]
     Dosage: 5 MG, BID
  22. LOVAZA [Concomitant]
  23. INSULIN [Concomitant]
  24. FORTEO [Suspect]
     Dosage: 20 UG, QD
     Route: 058
  25. MULTI-VITAMIN [Concomitant]

REACTIONS (20)
  - SNEEZING [None]
  - MOBILITY DECREASED [None]
  - SPEECH DISORDER [None]
  - RHINORRHOEA [None]
  - LACRIMATION INCREASED [None]
  - NASOPHARYNGITIS [None]
  - OROPHARYNGEAL PAIN [None]
  - RIB FRACTURE [None]
  - CONFUSIONAL STATE [None]
  - INJECTION SITE HAEMATOMA [None]
  - STERNAL FRACTURE [None]
  - DYSPHONIA [None]
  - MEMORY IMPAIRMENT [None]
  - NON-CARDIAC CHEST PAIN [None]
  - ISCHAEMIC STROKE [None]
  - VISION BLURRED [None]
  - BLOOD PRESSURE DECREASED [None]
  - GAIT DISTURBANCE [None]
  - COUGH [None]
  - DEPRESSION [None]
